FAERS Safety Report 18563974 (Version 1)
Quarter: 2020Q4

REPORT INFORMATION
  Report Type: Spontaneous
  Country: TW (occurrence: TW)
  Receive Date: 20201201
  Receipt Date: 20201201
  Transmission Date: 20210114
  Serious: Yes (Other)
  Sender: FDA-Public Use
  Company Number: TW-ROCHE-2723661

PATIENT

DRUGS (1)
  1. LUCENTIS [Suspect]
     Active Substance: RANIBIZUMAB
     Indication: RETINAL VEIN OCCLUSION
     Route: 047

REACTIONS (3)
  - Retinal artery occlusion [Recovered/Resolved with Sequelae]
  - Retinal vein occlusion [Recovered/Resolved with Sequelae]
  - Blindness [Recovering/Resolving]
